FAERS Safety Report 25760588 (Version 2)
Quarter: 2025Q3

REPORT INFORMATION
  Report Type: Spontaneous
  Country: US (occurrence: US)
  Receive Date: 20250904
  Receipt Date: 20250908
  Transmission Date: 20251020
  Serious: Yes (Other)
  Sender: PFIZER
  Company Number: US-MLMSERVICE-20250825-PI625562-00123-1

PATIENT
  Age: 62 Year
  Sex: Male

DRUGS (8)
  1. GEMCITABINE HYDROCHLORIDE [Suspect]
     Active Substance: GEMCITABINE HYDROCHLORIDE
     Indication: Myxoid liposarcoma
     Dosage: ON DAY 1 AND DAY 8 (21 DAYS)
  2. GEMCITABINE HYDROCHLORIDE [Suspect]
     Active Substance: GEMCITABINE HYDROCHLORIDE
     Indication: Metastases to heart
  3. DOCETAXEL [Suspect]
     Active Substance: DOCETAXEL
     Indication: Myxoid liposarcoma
     Dosage: DAY 8 (21 DAYS)
  4. DOCETAXEL [Suspect]
     Active Substance: DOCETAXEL
     Indication: Metastases to heart
  5. MITOMYCIN [Suspect]
     Active Substance: MITOMYCIN
     Indication: Myxoid liposarcoma
     Dosage: ON DAY 1 (EVERY 28 DAYS)
  6. MITOMYCIN [Suspect]
     Active Substance: MITOMYCIN
     Indication: Metastases to heart
  7. CISPLATIN [Suspect]
     Active Substance: CISPLATIN
     Indication: Myxoid liposarcoma
     Dosage: ON DAY 1 (EVERY 28 DAYS)
  8. CISPLATIN [Suspect]
     Active Substance: CISPLATIN
     Indication: Metastases to heart

REACTIONS (5)
  - Pneumonitis [Unknown]
  - Pulmonary toxicity [Unknown]
  - Infection [Unknown]
  - Inflammation [Unknown]
  - Off label use [Unknown]
